FAERS Safety Report 5297947-3 (Version None)
Quarter: 2007Q2

REPORT INFORMATION
  Report Type: 
  Country: None (occurrence: None)
  Receive Date: 20070416
  Receipt Date: 20070404
  Transmission Date: 20071010
  Serious: Yes (Hospitalization)
  Sender: FDA-Public Use
  Company Number: FR-GLAXOSMITHKLINE-B0465829A

PATIENT
  Age: 54 Year
  Sex: Female

DRUGS (5)
  1. DEROXAT [Suspect]
     Indication: DRUG USE FOR UNKNOWN INDICATION
     Route: 048
     Dates: start: 20060901, end: 20061212
  2. LEXOMIL [Concomitant]
  3. IMOVANE [Concomitant]
  4. DIPRIVAN [Concomitant]
     Dates: start: 20061212, end: 20061212
  5. RAPIFEN [Concomitant]
     Dates: start: 20061212, end: 20061212

REACTIONS (9)
  - ALOPECIA UNIVERSALIS [None]
  - COLITIS [None]
  - DIARRHOEA [None]
  - DRY SKIN [None]
  - HYPERKERATOSIS [None]
  - ICHTHYOSIS [None]
  - PALMAR ERYTHEMA [None]
  - RASH GENERALISED [None]
  - SKIN EXFOLIATION [None]
